FAERS Safety Report 5143243-4 (Version None)
Quarter: 2006Q4

REPORT INFORMATION
  Report Type: 
  Country: None (occurrence: None)
  Receive Date: 20061030
  Receipt Date: 20061020
  Transmission Date: 20070319
  Serious: No
  Sender: FDA-Public Use
  Company Number: ES-2006-031913

PATIENT
  Sex: Male

DRUGS (1)
  1. ULTRAVIST / CLAROGRAF 300 (IOPROMIDE) SOLUTION [Suspect]
     Indication: COMPUTERISED TOMOGRAM THORAX
     Dosage: 120 ML, 1 DOSE
     Dates: start: 20060101, end: 20060101

REACTIONS (2)
  - LOSS OF CONSCIOUSNESS [None]
  - SNEEZING [None]
